FAERS Safety Report 6452691-1 (Version None)
Quarter: 2009Q4

REPORT INFORMATION
  Report Type: 
  Country: None (occurrence: None)
  Receive Date: 20091123
  Receipt Date: 20091123
  Transmission Date: 20100525
  Serious: Yes (Other)
  Sender: FDA-Public Use
  Company Number: None

PATIENT
  Sex: Male
  Weight: 85.2762 kg

DRUGS (2)
  1. PRAVACHOL [Suspect]
     Indication: HYPERCHOLESTEROLAEMIA
     Dosage: PRAVACHOL 40MG QDAY PO
     Route: 048
     Dates: start: 20090128, end: 20090206
  2. ZOCOR [Suspect]
     Indication: HYPERCHOLESTEROLAEMIA
     Dosage: ZOCOR 40 MG Q DAY PO
     Route: 048
     Dates: start: 20090730, end: 20090803

REACTIONS (2)
  - CHEST PAIN [None]
  - DYSPNOEA [None]
